FAERS Safety Report 12653227 (Version 1)
Quarter: 2016Q3

REPORT INFORMATION
  Report Type: Spontaneous
  Country: CO (occurrence: CO)
  Receive Date: 20160815
  Receipt Date: 20160815
  Transmission Date: 20161109
  Serious: Yes (Other)
  Sender: FDA-Public Use
  Company Number: CO-ELI_LILLY_AND_COMPANY-CO201608004323

PATIENT
  Age: 76 Year
  Sex: Male

DRUGS (1)
  1. HUMALOG [Suspect]
     Active Substance: INSULIN LISPRO
     Indication: DIABETES MELLITUS
     Dosage: 10 U, EVERY 8 HRS
     Route: 058
     Dates: start: 20160730

REACTIONS (2)
  - Infarction [Unknown]
  - Wrong technique in product usage process [Not Recovered/Not Resolved]
